FAERS Safety Report 10083204 (Version 1)
Quarter: 2014Q2

REPORT INFORMATION
  Report Type: Report from Study
  Country: US (occurrence: US)
  Receive Date: 20140417
  Receipt Date: 20140417
  Transmission Date: 20141212
  Serious: Yes (Other)
  Sender: FDA-Public Use
  Company Number: US-ROCHE-1380455

PATIENT
  Age: 13 Year
  Sex: Male
  Weight: 85.6 kg

DRUGS (3)
  1. NUTROPIN [Suspect]
     Indication: GROWTH HORMONE DEFICIENCY
     Route: 058
  2. ADDERALL XR [Concomitant]
     Dosage: AM
     Route: 048
  3. ADDERALL XR [Concomitant]
     Dosage: PM
     Route: 048

REACTIONS (2)
  - Hand fracture [Unknown]
  - Acquired hydrocele [Unknown]
